FAERS Safety Report 7887296-9 (Version None)
Quarter: 2011Q4

REPORT INFORMATION
  Report Type: 
  Country: None (occurrence: None)
  Receive Date: 20111102
  Receipt Date: 20110718
  Transmission Date: 20120403
  Serious: No
  Sender: FDA-Public Use
  Company Number: US-AMGEN-USASP2011036554

PATIENT
  Age: 51 Year
  Sex: Female

DRUGS (1)
  1. ENBREL [Suspect]
     Indication: ARTHRITIS REACTIVE
     Dosage: 50 MG, QWK
     Dates: start: 20110123

REACTIONS (5)
  - NAUSEA [None]
  - HEADACHE [None]
  - MALAISE [None]
  - INSOMNIA [None]
  - VOMITING [None]
